FAERS Safety Report 23938162 (Version 1)
Quarter: 2024Q2

REPORT INFORMATION
  Report Type: Report from Study
  Country: AR (occurrence: AR)
  Receive Date: 20240604
  Receipt Date: 20240604
  Transmission Date: 20240716
  Serious: Yes (Hospitalization)
  Sender: FDA-Public Use
  Company Number: AR-AMRYT PHARMACEUTICALS DAC-AEGR007160

PATIENT

DRUGS (1)
  1. MYALEPT [Suspect]
     Active Substance: METRELEPTIN
     Indication: Congenital generalised lipodystrophy
     Dosage: UNK

REACTIONS (2)
  - Suicide attempt [Unknown]
  - Major depression [Unknown]
